FAERS Safety Report 19317011 (Version 1)
Quarter: 2021Q2

REPORT INFORMATION
  Report Type: Spontaneous
  Country: IT (occurrence: IT)
  Receive Date: 20210527
  Receipt Date: 20210527
  Transmission Date: 20210717
  Serious: Yes (Hospitalization)
  Sender: FDA-Public Use
  Company Number: NVSC2021IT110690

PATIENT
  Age: 77 Year
  Sex: Male
  Weight: 92 kg

DRUGS (6)
  1. SULFAMETHOXAZOLE AND TRIMETHOPRIM [Suspect]
     Active Substance: SULFAMETHOXAZOLE\TRIMETHOPRIM
     Indication: ANTIBIOTIC PROPHYLAXIS
     Dosage: 1 DF, QD
     Route: 048
     Dates: start: 20210413, end: 20210414
  2. PALEXIA [Concomitant]
     Active Substance: TAPENTADOL HYDROCHLORIDE
     Indication: ANTIBIOTIC PROPHYLAXIS
     Dosage: 2 DF
     Route: 048
     Dates: start: 20210413, end: 20210414
  3. PARACETAMOL [Concomitant]
     Active Substance: ACETAMINOPHEN
     Indication: PAIN PROPHYLAXIS
     Dosage: 3 G
     Route: 048
     Dates: start: 20210413, end: 20210414
  4. LEVOFLOXACIN. [Suspect]
     Active Substance: LEVOFLOXACIN
     Indication: ANTIBIOTIC PROPHYLAXIS
     Dosage: 500 MG, QD
     Route: 048
     Dates: start: 20210413, end: 20210414
  5. CLEXANE [Suspect]
     Active Substance: ENOXAPARIN SODIUM
     Indication: ANTIBIOTIC PROPHYLAXIS
     Dosage: 1 DF, QD
     Route: 058
     Dates: start: 20210413, end: 20210414
  6. BACTRIM [Suspect]
     Active Substance: SULFAMETHOXAZOLE\TRIMETHOPRIM
     Indication: ANTIBIOTIC PROPHYLAXIS
     Dosage: 1 DF
     Route: 048
     Dates: start: 20210413, end: 20210414

REACTIONS (3)
  - Pruritus [Recovering/Resolving]
  - Urticaria [Recovering/Resolving]
  - Erythema [Recovering/Resolving]

NARRATIVE: CASE EVENT DATE: 20210414
